FAERS Safety Report 9701241 (Version 2)
Quarter: 2015Q3

REPORT INFORMATION
  Report Type: Spontaneous
  Country: US (occurrence: US)
  Receive Date: 20131121
  Receipt Date: 20150803
  Transmission Date: 20151125
  Serious: No
  Sender: FDA-Public Use
  Company Number: US-GILEAD-2008-0016208

PATIENT
  Age: 79 Year
  Sex: Female

DRUGS (11)
  1. XANAX [Concomitant]
     Active Substance: ALPRAZOLAM
  2. FUROSEMIDE. [Concomitant]
     Active Substance: FUROSEMIDE
  3. LETAIRIS [Suspect]
     Active Substance: AMBRISENTAN
     Indication: PULMONARY ARTERIAL HYPERTENSION
     Route: 048
  4. SPIRIVA [Concomitant]
     Active Substance: TIOTROPIUM BROMIDE MONOHYDRATE
  5. VITAMIN D [Concomitant]
     Active Substance: CHOLECALCIFEROL
  6. POTASSIUM [Concomitant]
     Active Substance: POTASSIUM
  7. ALBUTEROL. [Concomitant]
     Active Substance: ALBUTEROL
  8. COUMADIN [Concomitant]
     Active Substance: WARFARIN SODIUM
  9. CALCIUM [Concomitant]
     Active Substance: CALCIUM
  10. SYNTHROID [Concomitant]
     Active Substance: LEVOTHYROXINE SODIUM
  11. ASPIRIN. [Concomitant]
     Active Substance: ASPIRIN

REACTIONS (3)
  - Nasal congestion [Recovered/Resolved]
  - Pulmonary congestion [Recovered/Resolved]
  - Cough [Recovered/Resolved]
